FAERS Safety Report 6742479-6 (Version None)
Quarter: 2010Q2

REPORT INFORMATION
  Report Type: 
  Country: None (occurrence: None)
  Receive Date: 20100526
  Receipt Date: 20100518
  Transmission Date: 20101027
  Serious: Yes (Hospitalization)
  Sender: FDA-Public Use
  Company Number: CH-PFIZER INC-2010062682

PATIENT
  Age: 72 Year
  Sex: Male

DRUGS (5)
  1. SORTIS [Suspect]
     Indication: CEREBRAL INFARCTION
     Dosage: 20 MG, 1X/DAY
     Route: 048
     Dates: start: 20090901, end: 20100313
  2. MARCUMAR [Suspect]
     Indication: CEREBRAL INFARCTION
     Dosage: 3 MG, AS NEEDED
     Route: 048
     Dates: start: 20090923, end: 20100313
  3. COVERSUM [Suspect]
     Dosage: 4 MG, 1X/DAY
     Dates: start: 20090901, end: 20100313
  4. BENERVA [Concomitant]
  5. BECOZYME FORTE [Concomitant]

REACTIONS (3)
  - EPISTAXIS [None]
  - HEPATOCELLULAR INJURY [None]
  - JAUNDICE [None]
